FAERS Safety Report 15325576 (Version 3)
Quarter: 2018Q3

REPORT INFORMATION
  Report Type: Spontaneous
  Country: US (occurrence: US)
  Receive Date: 20180828
  Receipt Date: 20180831
  Transmission Date: 20181010
  Serious: Yes (Other)
  Sender: FDA-Public Use
  Company Number: US-BAUSCH-BL-2018-023284

PATIENT
  Sex: Male

DRUGS (2)
  1. GATIFLOXACIN. [Suspect]
     Active Substance: GATIFLOXACIN
     Indication: PRODUCT USED FOR UNKNOWN INDICATION
     Dosage: FOR A COUPLE OF DAYS
     Route: 047
  2. BESIVANCE [Suspect]
     Active Substance: BESIFLOXACIN
     Indication: PRODUCT USED FOR UNKNOWN INDICATION
     Dosage: FOR A COUPLE OF DAYS
     Route: 047

REACTIONS (1)
  - Eye infection [Unknown]
